FAERS Safety Report 12052212 (Version 1)
Quarter: 2016Q1

REPORT INFORMATION
  Report Type: Spontaneous
  Country: None (occurrence: None)
  Receive Date: 20160208
  Receipt Date: 20160208
  Transmission Date: 20160526
  Serious: Yes (Disabling)
  Sender: FDA-Public Use
  Company Number: None

PATIENT
  Age: 49 Year
  Sex: Male
  Weight: 57.3 kg

DRUGS (6)
  1. LEVOPHED [Suspect]
     Active Substance: NOREPINEPHRINE BITARTRATE
     Indication: HYPOTENSION
     Dosage: 8 MG/250 ML NSS, 8MCG/MINUTE, INTRAVENOUS
     Route: 042
     Dates: start: 20160106, end: 20160205
  2. PROTONIX [Concomitant]
     Active Substance: PANTOPRAZOLE SODIUM
  3. VANCOMYCIN [Concomitant]
     Active Substance: VANCOMYCIN
  4. PRIMAXIN IV [Concomitant]
     Active Substance: CILASTATIN SODIUM\IMIPENEM
  5. LOVENOX [Concomitant]
     Active Substance: ENOXAPARIN SODIUM
  6. PRE-PROTEIN [Concomitant]

REACTIONS (1)
  - Cyanosis [None]

NARRATIVE: CASE EVENT DATE: 20160106
